FAERS Safety Report 16476411 (Version 1)
Quarter: 2019Q2

REPORT INFORMATION
  Report Type: Spontaneous
  Country: CH (occurrence: CH)
  Receive Date: 20190626
  Receipt Date: 20190626
  Transmission Date: 20190711
  Serious: Yes (Hospitalization, Other)
  Sender: FDA-Public Use
  Company Number: CH-ACTELION-A-CH2018-174190

PATIENT
  Age: 76 Year
  Sex: Female
  Weight: 55 kg

DRUGS (7)
  1. TRACLEER [Concomitant]
     Active Substance: BOSENTAN
     Indication: PULMONARY ARTERIAL HYPERTENSION
     Dosage: 125 MG, BID
     Route: 048
     Dates: start: 200905
  2. ZURCAL [Concomitant]
     Active Substance: PANTOPRAZOLE SODIUM
     Dosage: 40 MG, BID
  3. ADEMPAS [Concomitant]
     Active Substance: RIOCIGUAT
     Indication: PULMONARY ARTERIAL HYPERTENSION
     Dosage: 2.5 MG, TID
     Route: 048
     Dates: start: 201104
  4. TOREM [Concomitant]
     Active Substance: TORSEMIDE
     Dosage: 10 MG, UNK
  5. UPTRAVI [Suspect]
     Active Substance: SELEXIPAG
     Indication: PULMONARY HYPERTENSION
     Dosage: 400 MG, BID
     Route: 048
     Dates: start: 20161115, end: 20170306
  6. NEBILET [Concomitant]
     Active Substance: NEBIVOLOL
     Dosage: 5 MG, OD
  7. ZYLORIC [Concomitant]
     Active Substance: ALLOPURINOL
     Dosage: 300 UNK, UNK

REACTIONS (6)
  - Myalgia [Recovered/Resolved]
  - Headache [Unknown]
  - Renal failure [Unknown]
  - Oxygen saturation abnormal [Recovered/Resolved]
  - Right ventricular failure [Unknown]
  - Jugular vein distension [Unknown]

NARRATIVE: CASE EVENT DATE: 20170306
